FAERS Safety Report 4996933-8 (Version None)
Quarter: 2006Q2

REPORT INFORMATION
  Report Type: 
  Country: None (occurrence: None)
  Receive Date: 20060509
  Receipt Date: 20060424
  Transmission Date: 20061013
  Serious: Yes (Other)
  Sender: FDA-Public Use
  Company Number: 2006JP001108

PATIENT
  Sex: Female

DRUGS (3)
  1. CEFAZOLIN [Suspect]
     Indication: NEPHRITIS
     Dosage: 450MG PER DAY
     Route: 042
     Dates: start: 20060404, end: 20060406
  2. SOLITA-T3 [Concomitant]
     Dates: start: 20060404, end: 20060406
  3. UNSPECIFIED DRUG [Concomitant]
     Indication: PYREXIA

REACTIONS (5)
  - ALANINE AMINOTRANSFERASE INCREASED [None]
  - ASPARTATE AMINOTRANSFERASE INCREASED [None]
  - BLOOD LACTATE DEHYDROGENASE INCREASED [None]
  - HEPATIC FUNCTION ABNORMAL [None]
  - LIVER DISORDER [None]
